FAERS Safety Report 24869020 (Version 1)
Quarter: 2025Q1

REPORT INFORMATION
  Report Type: Spontaneous
  Country: US (occurrence: US)
  Receive Date: 20250121
  Receipt Date: 20250121
  Transmission Date: 20250409
  Serious: No
  Sender: BAYER HEALTHCARE LLC
  Company Number: US-BAYER-2025A009514

PATIENT
  Age: 62 Year
  Sex: Female

DRUGS (2)
  1. MIRALAX [Suspect]
     Active Substance: POLYETHYLENE GLYCOL 3350
  2. METAMUCIL [Concomitant]
     Active Substance: PLANTAGO SEED
     Dosage: UNK, QD

REACTIONS (1)
  - Drug ineffective [None]
